FAERS Safety Report 4567475-9 (Version None)
Quarter: 2005Q1

REPORT INFORMATION
  Report Type: 
  Country: None (occurrence: None)
  Receive Date: 20050127
  Receipt Date: 20050112
  Transmission Date: 20050727
  Serious: Yes (Hospitalization)
  Sender: FDA-Public Use
  Company Number: 2005014054

PATIENT
  Age: 85 Year
  Sex: Male

DRUGS (5)
  1. PREDNISOLONE [Suspect]
     Indication: POLYMYALGIA RHEUMATICA
     Dosage: 1 MG (1 MG, 1 IN 1 D), ORAL
     Route: 048
     Dates: start: 20030601, end: 20041219
  2. CLOPIDOGREL BISULFATE [Suspect]
     Indication: CEREBROVASCULAR ACCIDENT
     Dosage: 75 MG (75 MG, 1 IN 1 D), ORAL
     Route: 048
     Dates: start: 20041201, end: 20041219
  3. LANSOPRAZOLE [Concomitant]
  4. DIGOXIN [Concomitant]
  5. ACETAMINOPHEN [Concomitant]

REACTIONS (2)
  - HAEMATEMESIS [None]
  - PEPTIC ULCER [None]
